FAERS Safety Report 16886566 (Version 2)
Quarter: 2020Q4

REPORT INFORMATION
  Report Type: Spontaneous
  Country: US (occurrence: US)
  Receive Date: 20191004
  Receipt Date: 20201013
  Transmission Date: 20210113
  Serious: No
  Sender: FDA-Public Use
  Company Number: US-SA-2019SA271794

PATIENT

DRUGS (1)
  1. NASACORT ALLERGY 24HR [Suspect]
     Active Substance: TRIAMCINOLONE ACETONIDE
     Indication: HYPERSENSITIVITY
     Dosage: 2 DF, PRN (2 PUFFS EACH NOSTRIL  AT NOON AS NEEDED)
     Route: 045

REACTIONS (5)
  - Product packaging difficult to open [Unknown]
  - Dizziness [Unknown]
  - Extra dose administered [Unknown]
  - Cough [Unknown]
  - Dizziness [Recovered/Resolved]
